FAERS Safety Report 18692388 (Version 17)
Quarter: 2021Q4

REPORT INFORMATION
  Report Type: Spontaneous
  Country: PL (occurrence: PL)
  Receive Date: 20210103
  Receipt Date: 20211028
  Transmission Date: 20220303
  Serious: Yes (Life-Threatening, Hospitalization, Other)
  Sender: FDA-Public Use
  Company Number: NVSC2020PL345881

PATIENT
  Age: 69 Year
  Sex: Female

DRUGS (24)
  1. METOPROLOL [Interacting]
     Active Substance: METOPROLOL
     Indication: Hypertension
     Dosage: 100 MG, BID (200 MG, QD (TABLET))
     Route: 048
  2. METOPROLOL [Interacting]
     Active Substance: METOPROLOL
     Indication: Atrial fibrillation
     Dosage: 100 MG, 1XDAY (TABLET)
     Route: 048
  3. ROSUVASTATIN [Interacting]
     Active Substance: ROSUVASTATIN
     Indication: Hypertension
     Dosage: 10 MG, QD (10 MG, 1X/DAY)
     Route: 048
  4. KETOPROFEN [Interacting]
     Active Substance: KETOPROFEN
     Indication: Arthralgia
     Dosage: UNK, PRN (TAKEN AT TIMES OF SEVERE ARTHRALGIA)
     Route: 048
  5. KETOPROFEN [Interacting]
     Active Substance: KETOPROFEN
     Indication: Analgesic therapy
  6. NIMESULIDE [Interacting]
     Active Substance: NIMESULIDE
     Indication: Antiinflammatory therapy
     Dosage: 200 MG, QD (100 MG, 2X/DAY (EVERY 12 HOURS)
     Route: 048
  7. NIMESULIDE [Interacting]
     Active Substance: NIMESULIDE
     Indication: Analgesic therapy
  8. NIMESULIDE [Interacting]
     Active Substance: NIMESULIDE
     Indication: Inflammation
  9. NIMESULIDE [Interacting]
     Active Substance: NIMESULIDE
     Indication: Pain
  10. NIMESULIDE [Interacting]
     Active Substance: NIMESULIDE
     Indication: Analgesic intervention supportive therapy
  11. AMLODIPINE [Interacting]
     Active Substance: AMLODIPINE BESYLATE
     Indication: Hypertension
     Dosage: 1 DF, QD ((1X PER DAY IN MORNING)
     Route: 048
  12. PROPAFENONE [Interacting]
     Active Substance: PROPAFENONE
     Indication: Atrial fibrillation
     Dosage: 300 MG, PRN, ON DEMAND IN THE CASE OF AN EPISODE OF AF
     Route: 048
  13. PROPAFENONE [Interacting]
     Active Substance: PROPAFENONE
     Indication: Arrhythmia prophylaxis
  14. ASPIRIN [Interacting]
     Active Substance: ASPIRIN
     Indication: Viral infection
     Dosage: UNK (THE PATIENT WAS TAKING FOR THE LAST 3 DAYS DUE TO INFECTION)
     Route: 048
  15. ASPIRIN [Interacting]
     Active Substance: ASPIRIN
     Indication: Upper respiratory tract infection
  16. ASPIRIN [Interacting]
     Active Substance: ASPIRIN
     Indication: Infection
  17. SPORANOX [Interacting]
     Active Substance: ITRACONAZOLE
     Indication: Tinea versicolour
     Dosage: 200 MG, QD (100 MILLIGRAM, BID)
     Route: 048
  18. AMLODIPINE BESYLATE\INDAPAMIDE\PERINDOPRIL ARGININE [Interacting]
     Active Substance: AMLODIPINE BESYLATE\INDAPAMIDE\PERINDOPRIL ARGININE
     Indication: Product used for unknown indication
     Dosage: 1 DF, QD
     Route: 048
  19. PERINDOPRIL [Interacting]
     Active Substance: PERINDOPRIL
     Indication: Hypertension
     Dosage: 1 DF, QD (1 TABLET MORNING)
     Route: 048
  20. INDAPAMIDE [Interacting]
     Active Substance: INDAPAMIDE
     Indication: Hypertension
     Dosage: 1 DF, QD (1 TABLET MORNING)
     Route: 048
  21. DABIGATRAN [Interacting]
     Active Substance: DABIGATRAN
     Indication: Prophylaxis
     Dosage: 150 MG, BID
     Route: 048
  22. DABIGATRAN [Interacting]
     Active Substance: DABIGATRAN
     Indication: Ischaemic stroke
  23. DABIGATRAN [Interacting]
     Active Substance: DABIGATRAN
     Indication: Anticoagulant therapy
  24. ITRACONAZOLE [Interacting]
     Active Substance: ITRACONAZOLE
     Indication: Tinea versicolour
     Dosage: 100 MG, BID (200 MG, QD)
     Route: 048

REACTIONS (30)
  - Atrioventricular block complete [Recovered/Resolved]
  - Blood pressure decreased [Recovered/Resolved]
  - Leukocytosis [Recovered/Resolved]
  - Gastrointestinal haemorrhage [Recovered/Resolved]
  - Bradyarrhythmia [Recovered/Resolved]
  - Anaemia [Recovered/Resolved]
  - Cardiomyopathy [Recovered/Resolved]
  - Drug interaction [Recovered/Resolved]
  - Troponin increased [Recovered/Resolved]
  - Asthenia [Recovered/Resolved]
  - Syncope [Recovered/Resolved]
  - Gastritis erosive [Recovered/Resolved]
  - Atrioventricular block [Recovering/Resolving]
  - Bradycardia [Recovered/Resolved]
  - Product use issue [Unknown]
  - Incorrect dose administered [Unknown]
  - Circumstance or information capable of leading to medication error [Recovering/Resolving]
  - Haemorrhage [Unknown]
  - Product prescribing issue [Recovered/Resolved]
  - Labelled drug-drug interaction medication error [Unknown]
  - Duplicate therapy error [Recovered/Resolved]
  - Pallor [Recovered/Resolved]
  - Drug-disease interaction [Recovered/Resolved]
  - Drug ineffective [Unknown]
  - Drug level changed [Unknown]
  - Off label use [Unknown]
  - Product dispensing issue [Unknown]
  - Product dispensing error [Unknown]
  - Overdose [Unknown]
  - Intentional product use issue [Unknown]

NARRATIVE: CASE EVENT DATE: 20200101
